FAERS Safety Report 4397811-8 (Version None)
Quarter: 2004Q2

REPORT INFORMATION
  Report Type: 
  Country: None (occurrence: None)
  Receive Date: 20040621
  Receipt Date: 20040209
  Transmission Date: 20050107
  Serious: Yes (Death, Other)
  Sender: FDA-Public Use
  Company Number: USA-2004-0013023

PATIENT
  Age: 47 Year
  Sex: Male
  Weight: 90.8 kg

DRUGS (6)
  1. OXYCODONE HCL [Suspect]
  2. HEROIN (DIAMORPHINE) [Suspect]
     Dosage: INT
  3. COCAINE (COCAINE) [Suspect]
  4. CODEINE (CODEINE) [Suspect]
  5. CAFFEINE (CAFFEINE) [Suspect]
  6. NICOTINE [Suspect]

REACTIONS (3)
  - MULTIPLE DRUG OVERDOSE ACCIDENTAL [None]
  - OVERDOSE [None]
  - POLYSUBSTANCE ABUSE [None]
